FAERS Safety Report 17514084 (Version 1)
Quarter: 2020Q1

REPORT INFORMATION
  Report Type: Report from Study
  Country: None (occurrence: US)
  Receive Date: 20200309
  Receipt Date: 20200309
  Transmission Date: 20200409
  Serious: Yes (Death)
  Sender: FDA-Public Use
  Company Number: US-ABBVIE-20K-163-3308752-00

PATIENT
  Sex: Male

DRUGS (1)
  1. HUMIRA [Suspect]
     Active Substance: ADALIMUMAB
     Indication: DIABETES MELLITUS
     Route: 058

REACTIONS (2)
  - Cardiac disorder [Unknown]
  - Respiration abnormal [Fatal]

NARRATIVE: CASE EVENT DATE: 20200122
